FAERS Safety Report 5294494-X (Version None)
Quarter: 2007Q2

REPORT INFORMATION
  Report Type: 
  Country: None (occurrence: None)
  Receive Date: 20070412
  Receipt Date: 20070330
  Transmission Date: 20071010
  Serious: Yes (Other)
  Sender: FDA-Public Use
  Company Number: JP-PFIZER INC-2007027914

PATIENT
  Sex: Female

DRUGS (13)
  1. AROMASIN [Suspect]
     Route: 048
  2. DEXAMETHASONE [Suspect]
  3. MUCOSTA [Concomitant]
  4. TEGAFUR/GIMERACIL/OTERACIL POTASSIUM [Concomitant]
  5. NOVAMIN [Concomitant]
  6. LASIX [Concomitant]
  7. LOXONIN [Concomitant]
  8. MUCOSOLVAN [Concomitant]
  9. GASMOTIN [Concomitant]
  10. GASTER [Concomitant]
  11. LAC B [Concomitant]
  12. MAGNESIUM OXIDE [Concomitant]
  13. RITALIN [Concomitant]

REACTIONS (2)
  - CUSHINGOID [None]
  - WEIGHT INCREASED [None]
